FAERS Safety Report 8309162-7 (Version None)
Quarter: 2012Q2

REPORT INFORMATION
  Report Type: 
  Country: None (occurrence: None)
  Receive Date: 20120424
  Receipt Date: 20120413
  Transmission Date: 20120825
  Serious: Yes (Hospitalization, Other)
  Sender: FDA-Public Use
  Company Number: CA-BAXTER-2012BAX002875

PATIENT
  Age: 71 Year
  Sex: Male

DRUGS (3)
  1. EXTRANEAL [Suspect]
     Indication: PERITONEAL DIALYSIS
     Route: 033
  2. INSULIN [Concomitant]
     Route: 065
  3. DIANEAL [Suspect]
     Indication: PERITONEAL DIALYSIS
     Route: 033

REACTIONS (5)
  - RENAL FAILURE [None]
  - ATRIOVENTRICULAR BLOCK [None]
  - HEART RATE DECREASED [None]
  - ULTRAFILTRATION FAILURE [None]
  - CARDIAC DISORDER [None]
